FAERS Safety Report 5160601-2 (Version None)
Quarter: 2006Q4

REPORT INFORMATION
  Report Type: 
  Country: None (occurrence: None)
  Receive Date: 20061121
  Receipt Date: 20061026
  Transmission Date: 20070319
  Serious: Yes (Hospitalization, Other)
  Sender: FDA-Public Use
  Company Number: 2006077179

PATIENT
  Age: 47 Year
  Sex: Male

DRUGS (3)
  1. CELEBREX [Suspect]
     Dosage: (200 MG)
     Dates: start: 20041112
  2. BEXTRA [Suspect]
     Dates: start: 20041116
  3. VIOXX [Suspect]
     Dates: start: 20020212, end: 20040930

REACTIONS (1)
  - CEREBROVASCULAR ACCIDENT [None]
